FAERS Safety Report 12485098 (Version 1)
Quarter: 2016Q2

REPORT INFORMATION
  Report Type: Spontaneous
  Country: US (occurrence: US)
  Receive Date: 20160621
  Receipt Date: 20160621
  Transmission Date: 20160815
  Serious: No
  Sender: FDA-Public Use
  Company Number: US-PFIZER INC-2016307422

PATIENT
  Age: 73 Year
  Sex: Female

DRUGS (3)
  1. AROMASIN [Suspect]
     Active Substance: EXEMESTANE
     Indication: BREAST CANCER STAGE IV
     Dosage: 25 MG, 1X/DAY
     Route: 048
     Dates: start: 201205, end: 20160515
  2. VITAMIN B3 [Concomitant]
     Active Substance: NIACIN
     Indication: BREAST CANCER STAGE IV
     Dosage: UNK
  3. CALCIUM [Concomitant]
     Active Substance: CALCIUM
     Indication: METASTASES TO BONE
     Dosage: UNK

REACTIONS (2)
  - Disease progression [Unknown]
  - Breast cancer stage IV [Unknown]
